FAERS Safety Report 6869042-0 (Version None)
Quarter: 2010Q3

REPORT INFORMATION
  Report Type: 
  Country: None (occurrence: None)
  Receive Date: 20100722
  Receipt Date: 20080626
  Transmission Date: 20110219
  Serious: No
  Sender: FDA-Public Use
  Company Number: US-PFIZER INC-2008054268

PATIENT
  Age: 48 Year
  Sex: Female

DRUGS (15)
  1. CHANTIX [Suspect]
     Indication: SMOKING CESSATION THERAPY
     Dates: start: 20080612
  2. ACETAMINOPHEN AND HYDROCODONE BITARTRATE [Concomitant]
  3. GLYBURIDE [Concomitant]
  4. LYRICA [Concomitant]
  5. FUROSEMIDE [Concomitant]
  6. SPIRONOLACTONE [Concomitant]
  7. VALSARTAN [Concomitant]
  8. ALPRAZOLAM [Concomitant]
  9. METFORMIN [Concomitant]
  10. SULAR [Concomitant]
  11. PAROXETINE HCL [Concomitant]
  12. CYMBALTA [Concomitant]
  13. METOPROLOL - SLOW RELEASE [Concomitant]
  14. WARFARIN SODIUM [Concomitant]
  15. FLUCONAZOLE [Concomitant]

REACTIONS (1)
  - DRUG INEFFECTIVE [None]
